FAERS Safety Report 7561047-X (Version None)
Quarter: 2011Q2

REPORT INFORMATION
  Report Type: 
  Country: None (occurrence: None)
  Receive Date: 20110621
  Receipt Date: 20110616
  Transmission Date: 20111010
  Serious: Yes (Other)
  Sender: FDA-Public Use
  Company Number: BW-B.I. PHARMACEUTICALS,INC./RIDGEFIELD-2011-DE-03643GD

PATIENT
  Age: 26 Year
  Sex: Male

DRUGS (3)
  1. DIDANOSINE [Suspect]
     Indication: HIV INFECTION
  2. ZIDOVUDINE [Suspect]
     Indication: HIV INFECTION
  3. NEVIRAPINE [Suspect]
     Indication: HIV INFECTION

REACTIONS (4)
  - LIPASE INCREASED [None]
  - VOMITING [None]
  - NAUSEA [None]
  - ABDOMINAL PAIN [None]
